FAERS Safety Report 13843167 (Version 2)
Quarter: 2018Q1

REPORT INFORMATION
  Report Type: Report from Study
  Country: US (occurrence: US)
  Receive Date: 20170808
  Receipt Date: 20180221
  Transmission Date: 20180508
  Serious: No
  Sender: FDA-Public Use
  Company Number: US-BRISTOL-MYERS SQUIBB COMPANY-BMS-2017-070127

PATIENT
  Sex: Female

DRUGS (1)
  1. ABATACEPT [Suspect]
     Active Substance: ABATACEPT
     Indication: RHEUMATOID ARTHRITIS
     Dosage: 1 DF, QWK
     Route: 058
     Dates: start: 20170729

REACTIONS (9)
  - Malaise [Unknown]
  - Dry mouth [Unknown]
  - Rash [Unknown]
  - Inflammation [Unknown]
  - Influenza [Unknown]
  - Asthenia [Unknown]
  - Fatigue [Unknown]
  - Oropharyngeal pain [Unknown]
  - Abdominal pain upper [Unknown]
